FAERS Safety Report 9671733 (Version 1)
Quarter: 2013Q4

REPORT INFORMATION
  Report Type: Spontaneous
  Country: US (occurrence: None)
  Receive Date: 20131105
  Receipt Date: 20131105
  Transmission Date: 20140711
  Serious: Yes (Other)
  Sender: FDA-Public Use
  Company Number: None

PATIENT
  Sex: 0

DRUGS (1)
  1. RIVAROXABAN [Suspect]
     Dates: start: 20131001, end: 20131001

REACTIONS (3)
  - Dizziness [None]
  - Dizziness [None]
  - Haemorrhage [None]
